FAERS Safety Report 20660542 (Version 1)
Quarter: 2022Q1

REPORT INFORMATION
  Report Type: Spontaneous
  Country: US (occurrence: US)
  Receive Date: 20220331
  Receipt Date: 20220331
  Transmission Date: 20220424
  Serious: No
  Sender: FDA-Public Use
  Company Number: US-PFIZER INC-2021898525

PATIENT
  Age: 46 Year
  Sex: Female
  Weight: 54.422 kg

DRUGS (1)
  1. IBRANCE [Suspect]
     Active Substance: PALBOCICLIB
     Indication: Breast cancer female
     Dosage: 1 DAILY FOR 21 DAYS
     Route: 048
     Dates: start: 20210603

REACTIONS (2)
  - Alopecia [Unknown]
  - Stomatitis [Unknown]
